FAERS Safety Report 10683371 (Version 1)
Quarter: 2014Q4

REPORT INFORMATION
  Report Type: Spontaneous
  Country: BE (occurrence: BE)
  Receive Date: 20141230
  Receipt Date: 20141230
  Transmission Date: 20150529
  Serious: Yes (Life-Threatening)
  Sender: FDA-Public Use
  Company Number: BE-SA-2014SA176822

PATIENT
  Age: 57 Year
  Sex: Female

DRUGS (1)
  1. ELOXATIN [Suspect]
     Active Substance: OXALIPLATIN
     Route: 065
     Dates: start: 20141117

REACTIONS (5)
  - Diarrhoea [Unknown]
  - Hallucination [Unknown]
  - Chills [Unknown]
  - Mobility decreased [Unknown]
  - Vomiting [Unknown]

NARRATIVE: CASE EVENT DATE: 20141202
